FAERS Safety Report 6013869-4 (Version None)
Quarter: 2008Q4

REPORT INFORMATION
  Report Type: 
  Country: None (occurrence: None)
  Receive Date: 20081219
  Receipt Date: 20081211
  Transmission Date: 20090506
  Serious: Yes (Hospitalization)
  Sender: FDA-Public Use
  Company Number: DE-WYE-H06974608

PATIENT
  Sex: Male
  Weight: 85 kg

DRUGS (5)
  1. TACROLIMUS [Suspect]
     Indication: PROPHYLAXIS AGAINST TRANSPLANT REJECTION
     Route: 048
     Dates: start: 20071114
  2. NOVALGIN [Concomitant]
     Indication: ANALGESIA
     Dosage: 500, 1-1-1
  3. URSO FALK [Concomitant]
     Indication: CHOLELITHIASIS
     Dosage: 250, ^1-1-1^
  4. RAPAMUNE [Concomitant]
     Indication: PROPHYLAXIS AGAINST TRANSPLANT REJECTION
     Dosage: 1 MG, ^0-1-0^
  5. PANTOPRAZOLE SODIUM [Concomitant]
     Indication: PROPHYLAXIS
     Dosage: 20, ^0-0-1^

REACTIONS (2)
  - PANCREATITIS [None]
  - PRURITUS [None]
